FAERS Safety Report 22298071 (Version 1)
Quarter: 2023Q2

REPORT INFORMATION
  Report Type: Report from Study
  Country: BE (occurrence: BE)
  Receive Date: 20230509
  Receipt Date: 20230509
  Transmission Date: 20230721
  Serious: Yes (Death)
  Sender: FDA-Public Use
  Company Number: BE-ABBVIE-4758813

PATIENT
  Age: 58 Year
  Sex: Male
  Weight: 79 kg

DRUGS (6)
  1. UPADACITINIB [Suspect]
     Active Substance: UPADACITINIB
     Indication: Rheumatoid arthritis
     Dosage: 15 MILLIGRAM
     Route: 048
     Dates: start: 20210927, end: 20230508
  2. PREDNISOLONE [Concomitant]
     Active Substance: PREDNISOLONE
     Indication: Rheumatoid arthritis
     Dosage: 7.5 MILLIGRAM
     Route: 048
     Dates: start: 20210924
  3. INFLUENZA VIRUS VACCINE [Concomitant]
     Active Substance: INFLUENZA VIRUS VACCINE
     Indication: Influenza immunisation
     Dates: start: 20201105, end: 20201105
  4. SARS-CoV-2 vaccine (vero cell), inactivada [Concomitant]
     Indication: COVID-19 immunisation
     Dates: start: 20210601, end: 20210601
  5. SARS-CoV-2 vaccine (vero cell), inactivada [Concomitant]
     Indication: COVID-19 immunisation
     Dates: start: 20211106, end: 20211106
  6. SARS-CoV-2 vaccine (vero cell), inactivada [Concomitant]
     Indication: COVID-19 immunisation
     Dates: start: 20210706, end: 20210706

REACTIONS (1)
  - Accident at home [Fatal]

NARRATIVE: CASE EVENT DATE: 20230508
